FAERS Safety Report 19992278 (Version 11)
Quarter: 2022Q2

REPORT INFORMATION
  Report Type: Report from Study
  Country: PT (occurrence: PT)
  Receive Date: 20211026
  Receipt Date: 20220530
  Transmission Date: 20220721
  Serious: Yes (Hospitalization, Other)
  Sender: FDA-Public Use
  Company Number: PT-ABBVIE-21K-130-4134169-00

PATIENT
  Age: 71 Year
  Sex: Female

DRUGS (14)
  1. CARBIDOPA\LEVODOPA [Suspect]
     Active Substance: CARBIDOPA\LEVODOPA
     Indication: Parkinson^s disease
     Dosage: 20 MG PLUS 5 MG
     Route: 050
     Dates: start: 20210413, end: 2021
  2. CARBIDOPA\LEVODOPA [Suspect]
     Active Substance: CARBIDOPA\LEVODOPA
     Dosage: 20 MG PLUS 5 MG
     Route: 050
     Dates: start: 2021
  3. CARBIDOPA\LEVODOPA [Suspect]
     Active Substance: CARBIDOPA\LEVODOPA
     Dosage: 20 MG PLUS 5 MG, MORN:12.4CC;MAINT:3.2CC/H;EXTRA:2CC
     Route: 050
     Dates: start: 20220215, end: 20220222
  4. CARBIDOPA\LEVODOPA [Suspect]
     Active Substance: CARBIDOPA\LEVODOPA
     Dosage: 20 MG PLUS 5 MG, MORN:12.4CC;MAINT:3.1CC/H;EXTRA:2CC
     Route: 050
     Dates: start: 20220222, end: 2022
  5. CARBIDOPA\LEVODOPA [Suspect]
     Active Substance: CARBIDOPA\LEVODOPA
     Dosage: 20 MG PLUS 5 MG?MORN:12.4CC;MAINT:3.0CC/H;EXTRA:2CC
     Route: 050
     Dates: start: 2022, end: 20220502
  6. CARBIDOPA\LEVODOPA [Suspect]
     Active Substance: CARBIDOPA\LEVODOPA
     Dosage: 20 MG + 5 MG?MORN:12.4CC;MAINT:2.9CC/H;EXTRA:2CC;LL1
     Route: 050
     Dates: start: 20220502
  7. IRON [Suspect]
     Active Substance: IRON
     Indication: Product used for unknown indication
     Route: 048
  8. CARBIDOPA\LEVODOPA [Concomitant]
     Active Substance: CARBIDOPA\LEVODOPA
     Indication: Product used for unknown indication
  9. PRAMIPEXOLE [Concomitant]
     Active Substance: PRAMIPEXOLE
     Indication: Product used for unknown indication
  10. DULOXETINE [Concomitant]
     Active Substance: DULOXETINE
     Indication: Product used for unknown indication
  11. AMOXICILLIN\CLAVULANATE POTASSIUM [Concomitant]
     Active Substance: AMOXICILLIN\CLAVULANATE POTASSIUM
     Indication: Thrombophlebitis
     Dates: start: 2021
  12. METRONIDAZOLE [Concomitant]
     Active Substance: METRONIDAZOLE
     Indication: Thrombophlebitis
     Dates: start: 2021
  13. ASPIRIN [Concomitant]
     Active Substance: ASPIRIN
     Indication: Product used for unknown indication
     Route: 048
     Dates: start: 202203
  14. PROPOFOL [Concomitant]
     Active Substance: PROPOFOL
     Indication: Sedation
     Dates: start: 20220524, end: 20220524

REACTIONS (10)
  - Anaemia [Unknown]
  - Haemorrhage [Recovered/Resolved]
  - Melaena [Recovered/Resolved]
  - Abdominal pain [Recovering/Resolving]
  - Fatigue [Recovered/Resolved]
  - Constipation [Not Recovered/Not Resolved]
  - Ulcer [Recovered/Resolved]
  - Faeces discoloured [Not Recovered/Not Resolved]
  - Gastrointestinal mucosa hyperaemia [Unknown]
  - Mucosal erosion [Unknown]

NARRATIVE: CASE EVENT DATE: 20211021
